FAERS Safety Report 16760641 (Version 1)
Quarter: 2019Q3

REPORT INFORMATION
  Report Type: Spontaneous
  Country: CA (occurrence: CA)
  Receive Date: 20190830
  Receipt Date: 20190830
  Transmission Date: 20191005
  Serious: Yes (Other)
  Sender: FDA-Public Use
  Company Number: CA-PFIZER INC-2019371411

PATIENT
  Sex: Male

DRUGS (1)
  1. TOLTERODINE TARTRATE. [Suspect]
     Active Substance: TOLTERODINE TARTRATE
     Indication: HYPERTONIC BLADDER
     Dosage: UNK
     Route: 048

REACTIONS (5)
  - Penile haemorrhage [Unknown]
  - Fungal infection [Unknown]
  - Skin fissures [Unknown]
  - Penis disorder [Unknown]
  - Penile erythema [Unknown]
